FAERS Safety Report 4301636-9 (Version None)
Quarter: 2004Q1

REPORT INFORMATION
  Report Type: 
  Country: None (occurrence: None)
  Receive Date: 20040219
  Receipt Date: 20040204
  Transmission Date: 20041129
  Serious: Yes (Hospitalization)
  Sender: FDA-Public Use
  Company Number: 190583

PATIENT
  Age: 43 Year
  Sex: Female
  Weight: 97.5234 kg

DRUGS (3)
  1. AVONEX [Suspect]
     Indication: MULTIPLE SCLEROSIS
     Dosage: 30 MCG QW IM
     Route: 030
     Dates: start: 19991101
  2. MULTIVITAMIN [Concomitant]
  3. COLONIC LAVAGE [Concomitant]

REACTIONS (7)
  - CHOLECYSTECTOMY [None]
  - COLON INJURY [None]
  - HEPATIC TRAUMA [None]
  - LIGAMENT INJURY [None]
  - LOSS OF CONSCIOUSNESS [None]
  - LOWER LIMB FRACTURE [None]
  - ROAD TRAFFIC ACCIDENT [None]
